FAERS Safety Report 20774357 (Version 1)
Quarter: 2022Q2

REPORT INFORMATION
  Report Type: Report from Study
  Country: US (occurrence: US)
  Receive Date: 20220502
  Receipt Date: 20220502
  Transmission Date: 20220721
  Serious: Yes (Hospitalization)
  Sender: FDA-Public Use
  Company Number: US-ABBVIE-22K-163-4261191-00

PATIENT
  Sex: Female

DRUGS (1)
  1. IMBRUVICA [Suspect]
     Active Substance: IBRUTINIB
     Indication: Product used for unknown indication
     Route: 048

REACTIONS (6)
  - Pleural effusion [Recovering/Resolving]
  - Bronchitis [Unknown]
  - Cough [Recovering/Resolving]
  - Arrhythmia [Recovering/Resolving]
  - Fatigue [Recovering/Resolving]
  - Pertussis [Recovering/Resolving]
